FAERS Safety Report 7990362-0 (Version None)
Quarter: 2011Q4

REPORT INFORMATION
  Report Type: 
  Country: None (occurrence: None)
  Receive Date: 20111219
  Receipt Date: 20110502
  Transmission Date: 20120403
  Serious: No
  Sender: FDA-Public Use
  Company Number: US-ASTRAZENECA-2011SE26028

PATIENT
  Sex: Female

DRUGS (11)
  1. GLIPIZIDE [Concomitant]
  2. CALCIUM SUPPLEMENT [Concomitant]
  3. STRONTIUM [Concomitant]
  4. NIACIN [Concomitant]
  5. RED RICE YEAST [Concomitant]
  6. CO Q10 [Concomitant]
  7. LISINOPRIL [Concomitant]
  8. OMEGA FISH OIL [Concomitant]
  9. CRESTOR [Suspect]
     Indication: BLOOD CHOLESTEROL INCREASED
     Route: 048
  10. CRESTOR [Suspect]
     Route: 048
     Dates: start: 20110401
  11. METFORMIN HCL [Concomitant]

REACTIONS (1)
  - HAIR COLOUR CHANGES [None]
